FAERS Safety Report 4787989-6 (Version None)
Quarter: 2005Q3

REPORT INFORMATION
  Report Type: 
  Country: None (occurrence: None)
  Receive Date: 20050914
  Receipt Date: 20050620
  Transmission Date: 20060218
  Serious: Yes (Other)
  Sender: FDA-Public Use
  Company Number: 408511

PATIENT
  Age: 76 Year
  Sex: Female
  Weight: 45.4 kg

DRUGS (3)
  1. BONIVA [Suspect]
     Dates: start: 20050618
  2. MIACALCIN (SALCATONIN) [Concomitant]
  3. CALTRATE (CALCIUM CARBONATE) [Concomitant]

REACTIONS (6)
  - ABDOMINAL PAIN UPPER [None]
  - ARTHRALGIA [None]
  - BONE PAIN [None]
  - COSTOCHONDRITIS [None]
  - DIARRHOEA [None]
  - MYALGIA [None]
